FAERS Safety Report 11505818 (Version 1)
Quarter: 2015Q3

REPORT INFORMATION
  Report Type: Spontaneous
  Country: US (occurrence: US)
  Receive Date: 20150915
  Receipt Date: 20150915
  Transmission Date: 20151125
  Serious: No
  Sender: FDA-Public Use
  Company Number: US-ROCHE-745151

PATIENT
  Age: 48 Year
  Sex: Female
  Weight: 53.1 kg

DRUGS (2)
  1. RIBAVIRIN. [Suspect]
     Active Substance: RIBAVIRIN
     Indication: HEPATITIS C
     Dosage: DIVIDED DOSES
     Route: 065
  2. PEGASYS [Suspect]
     Active Substance: PEGINTERFERON ALFA-2A
     Indication: HEPATITIS C
     Dosage: FORM: PRE-FILLED SYRINGE
     Route: 065

REACTIONS (9)
  - White blood cell count decreased [Unknown]
  - Stomatitis [Recovering/Resolving]
  - Fungal infection [Recovering/Resolving]
  - Decreased appetite [Unknown]
  - Eating disorder [Recovering/Resolving]
  - Depression [Unknown]
  - Tongue blistering [Not Recovered/Not Resolved]
  - Diarrhoea [Recovering/Resolving]
  - Skin ulcer [Not Recovered/Not Resolved]

NARRATIVE: CASE EVENT DATE: 20101115
